FAERS Safety Report 13139741 (Version 4)
Quarter: 2017Q1

REPORT INFORMATION
  Report Type: Spontaneous
  Country: US (occurrence: US)
  Receive Date: 20170123
  Receipt Date: 20170324
  Transmission Date: 20170428
  Serious: Yes (Other)
  Sender: FDA-Public Use
  Company Number: US-ASTELLAS-2017US001417

PATIENT
  Age: 88 Year
  Sex: Male

DRUGS (3)
  1. XTANDI [Suspect]
     Active Substance: ENZALUTAMIDE
     Indication: METASTASES TO BONE
     Route: 048
  2. XTANDI [Suspect]
     Active Substance: ENZALUTAMIDE
     Indication: PROSTATE CANCER
     Route: 048
     Dates: start: 20161209
  3. XTANDI [Suspect]
     Active Substance: ENZALUTAMIDE
     Dosage: 80 MG (2 CAPSULES), ONCE DAILY
     Route: 048

REACTIONS (8)
  - Confusional state [Unknown]
  - Hypersomnia [Recovering/Resolving]
  - Drug dose omission [Unknown]
  - Fatigue [Recovering/Resolving]
  - Dementia [Not Recovered/Not Resolved]
  - Somnolence [Recovering/Resolving]
  - Treatment noncompliance [Unknown]
  - Hallucination [Unknown]

NARRATIVE: CASE EVENT DATE: 20170202
